FAERS Safety Report 12416285 (Version 2)
Quarter: 2016Q3

REPORT INFORMATION
  Report Type: Spontaneous
  Country: ZA (occurrence: ZA)
  Receive Date: 20160530
  Receipt Date: 20160706
  Transmission Date: 20161109
  Serious: Yes (Other)
  Sender: FDA-Public Use
  Company Number: ZA-PFIZER INC-2016275771

PATIENT
  Age: 30 Year
  Sex: Female

DRUGS (2)
  1. VENLOR [Concomitant]
     Active Substance: VENLAFAXINE HYDROCHLORIDE
     Dosage: UNK
  2. EXSIRA [Suspect]
     Active Substance: DESVENLAFAXINE SUCCINATE
     Dosage: 50 MG, UNK

REACTIONS (3)
  - Intentional product misuse [Unknown]
  - Suicidal ideation [Unknown]
  - Depression [Unknown]
